FAERS Safety Report 5521006-5 (Version None)
Quarter: 2007Q4

REPORT INFORMATION
  Report Type: 
  Country: None (occurrence: None)
  Receive Date: 20071119
  Receipt Date: 20070522
  Transmission Date: 20080405
  Serious: Yes (Death)
  Sender: FDA-Public Use
  Company Number: JP-ROCHE-490156

PATIENT
  Age: 39 Year
  Sex: Male

DRUGS (1)
  1. OSELTAMIVIR [Suspect]
     Dosage: TOOK TWO CAPSULES.
     Route: 065
     Dates: start: 20050205

REACTIONS (2)
  - CARDIAC ARREST [None]
  - SUDDEN DEATH [None]
